FAERS Safety Report 4944381-9 (Version None)
Quarter: 2006Q1

REPORT INFORMATION
  Report Type: 
  Country: None (occurrence: None)
  Receive Date: 20060104
  Receipt Date: 20050811
  Transmission Date: 20060701
  Serious: Yes (Other)
  Sender: FDA-Public Use
  Company Number: A03200502472

PATIENT
  Sex: Female

DRUGS (1)
  1. ELOXATIN [Suspect]
     Indication: COLON CANCER STAGE III
     Dosage: INTRAVENOUS NOS
     Route: 042

REACTIONS (6)
  - ERYTHEMA [None]
  - EYE SWELLING [None]
  - NEUROPATHY [None]
  - RHINORRHOEA [None]
  - SNEEZING [None]
  - SWELLING FACE [None]
